FAERS Safety Report 5649006-5 (Version None)
Quarter: 2008Q1

REPORT INFORMATION
  Report Type: 
  Country: None (occurrence: None)
  Receive Date: 20080304
  Receipt Date: 20080222
  Transmission Date: 20080703
  Serious: Yes (Death, Hospitalization)
  Sender: FDA-Public Use
  Company Number: JP-JNJFOC-20080203482

PATIENT
  Age: 72 Year
  Sex: Female

DRUGS (4)
  1. ITRIZOLE [Suspect]
     Indication: TINEA INFECTION
     Route: 048
  2. LOXOPROFEN SODIUM [Concomitant]
     Route: 048
  3. LORATADINE [Concomitant]
     Route: 048
  4. TEPRENONE [Concomitant]
     Route: 048

REACTIONS (3)
  - HEPATIC ENZYME INCREASED [None]
  - INTERSTITIAL LUNG DISEASE [None]
  - MALAISE [None]
